FAERS Safety Report 25003096 (Version 2)
Quarter: 2025Q1

REPORT INFORMATION
  Report Type: Spontaneous
  Country: JP (occurrence: JP)
  Receive Date: 20250224
  Receipt Date: 20250328
  Transmission Date: 20250409
  Serious: Yes (Hospitalization)
  Sender: MERCK SHARP & DOHME LLC
  Company Number: JP-009507513-2257038

PATIENT
  Age: 6 Decade

DRUGS (1)
  1. KEYTRUDA [Suspect]
     Active Substance: PEMBROLIZUMAB
     Indication: Renal cell carcinoma
     Route: 041

REACTIONS (5)
  - Acquired haemophilia [Unknown]
  - Anaemia [Unknown]
  - Diarrhoea [Unknown]
  - Muscle haemorrhage [Unknown]
  - Coagulation test abnormal [Unknown]
